FAERS Safety Report 14845350 (Version 1)
Quarter: 2018Q2

REPORT INFORMATION
  Report Type: Report from Study
  Country: JP (occurrence: JP)
  Receive Date: 20180504
  Receipt Date: 20180504
  Transmission Date: 20180711
  Serious: Yes (Hospitalization)
  Sender: FDA-Public Use
  Company Number: JP-TEVA-2018-JP-887425

PATIENT
  Age: 82 Year
  Sex: Female

DRUGS (2)
  1. CEFTRIAXONE. [Suspect]
     Active Substance: CEFTRIAXONE
     Indication: URINARY TRACT INFECTION ENTEROCOCCAL
     Dosage: 2 GRAM DAILY;
     Route: 042
  2. THIAMAZOLE [Concomitant]
     Active Substance: METHIMAZOLE
     Indication: THYROTOXIC CRISIS
     Route: 065

REACTIONS (3)
  - Pseudocholelithiasis [Unknown]
  - Biliary tract disorder [Recovered/Resolved]
  - Pancreatitis acute [Unknown]
